FAERS Safety Report 20712034 (Version 5)
Quarter: 2023Q4

REPORT INFORMATION
  Report Type: Spontaneous
  Country: US (occurrence: US)
  Receive Date: 20220414
  Receipt Date: 20231025
  Transmission Date: 20240110
  Serious: No
  Sender: FDA-Public Use
  Company Number: US-PFIZER INC-202200240665

PATIENT
  Age: 66 Year
  Sex: Female

DRUGS (1)
  1. XELJANZ XR [Suspect]
     Active Substance: TOFACITINIB CITRATE
     Indication: Rheumatoid arthritis
     Dosage: 11 MG
     Dates: end: 202204

REACTIONS (6)
  - Pain in extremity [Unknown]
  - Hypertension [Unknown]
  - Psoriasis [Unknown]
  - Product dose omission issue [Unknown]
  - Product dispensing issue [Unknown]
  - Muscular weakness [Unknown]
